FAERS Safety Report 9217685 (Version 1)
Quarter: 2013Q2

REPORT INFORMATION
  Report Type: Spontaneous
  Country: CL (occurrence: CL)
  Receive Date: 20130408
  Receipt Date: 20130408
  Transmission Date: 20140414
  Serious: Yes (Other)
  Sender: FDA-Public Use
  Company Number: CL-PFIZER INC-2013105444

PATIENT
  Age: 37 Year
  Sex: Female

DRUGS (1)
  1. DEPO-PRODASONE [Suspect]
     Dosage: 150 MG/ML, UNK

REACTIONS (8)
  - Bradycardia [Unknown]
  - Hypotension [Unknown]
  - Dyspnoea [Unknown]
  - Oxygen saturation decreased [Unknown]
  - Chest pain [Unknown]
  - Pruritus generalised [Unknown]
  - Erythema [Unknown]
  - Urticaria [Unknown]
